FAERS Safety Report 21397375 (Version 1)
Quarter: 2022Q3

REPORT INFORMATION
  Report Type: Spontaneous
  Country: US (occurrence: None)
  Receive Date: 20220930
  Receipt Date: 20220930
  Transmission Date: 20221026
  Serious: Yes (Disabling)
  Sender: FDA-Public Use
  Company Number: None

PATIENT
  Age: 63 Year
  Sex: Female
  Weight: 49.5 kg

DRUGS (6)
  1. FLUOROURACIL CREAM [Suspect]
     Active Substance: FLUOROURACIL
     Indication: Precancerous condition
     Dosage: OTHER QUANTITY : 1 DOT OF CREAM;?FREQUENCY : AT BEDTIME;?
     Route: 061
  2. VITAMINS [Concomitant]
     Active Substance: VITAMINS
  3. VITAMIN C [Concomitant]
     Active Substance: ASCORBIC ACID
  4. VITAMIN B12 [Concomitant]
     Active Substance: CYANOCOBALAMIN
  5. VITAMIN D3 [Concomitant]
     Active Substance: CHOLECALCIFEROL
  6. VITAMIN A [Concomitant]

REACTIONS (2)
  - Pain in extremity [None]
  - Axillary mass [None]

NARRATIVE: CASE EVENT DATE: 20220927
